FAERS Safety Report 9395504 (Version 1)
Quarter: 2013Q3

REPORT INFORMATION
  Report Type: Spontaneous
  Country: FR (occurrence: FR)
  Receive Date: 20130711
  Receipt Date: 20130711
  Transmission Date: 20140515
  Serious: Yes (Life-Threatening, Hospitalization, Other)
  Sender: FDA-Public Use
  Company Number: FR-ELI_LILLY_AND_COMPANY-FR201307000868

PATIENT
  Age: 33 Year
  Sex: Female

DRUGS (5)
  1. ZYPREXA [Suspect]
     Dosage: 10 MG, QD
     Route: 048
  2. IMPLANON [Suspect]
     Indication: CONTRACEPTION
     Dosage: 1 DF, UNKNOWN
     Route: 065
     Dates: end: 20130523
  3. BROMAZEPAM [Concomitant]
     Dosage: 1 DF, UNKNOWN
     Route: 065
  4. ZOPICLONE [Concomitant]
     Dosage: 7.5 MG, UNKNOWN
     Route: 065
  5. ZYRTEC [Concomitant]
     Dosage: 10 MG, QD
     Route: 065

REACTIONS (13)
  - Pulmonary embolism [Recovered/Resolved]
  - Liver injury [Unknown]
  - Cholestasis [Unknown]
  - Pyrexia [Unknown]
  - Muscular weakness [Unknown]
  - Splenic cyst [Unknown]
  - Spigelian hernia [Unknown]
  - Hot flush [Unknown]
  - Tremor [Unknown]
  - Arthralgia [Unknown]
  - Blood triglycerides increased [Unknown]
  - High density lipoprotein increased [Unknown]
  - Low density lipoprotein increased [Unknown]
